FAERS Safety Report 6831547-6 (Version None)
Quarter: 2010Q3

REPORT INFORMATION
  Report Type: 
  Country: None (occurrence: None)
  Receive Date: 20100712
  Receipt Date: 20100628
  Transmission Date: 20110219
  Serious: Yes (Hospitalization)
  Sender: FDA-Public Use
  Company Number: PHHY2010TW13818

PATIENT
  Sex: Female

DRUGS (1)
  1. GLEEVEC [Suspect]
     Indication: GASTROINTESTINAL STROMAL TUMOUR
     Dosage: 400 MG, UNK

REACTIONS (6)
  - ANAEMIA [None]
  - DIALYSIS [None]
  - DYSPNOEA [None]
  - PLEURAL EFFUSION [None]
  - RENAL DISORDER [None]
  - RENAL IMPAIRMENT [None]
